FAERS Safety Report 21035112 (Version 1)
Quarter: 2022Q3

REPORT INFORMATION
  Report Type: Spontaneous
  Country: US (occurrence: None)
  Receive Date: 20220701
  Receipt Date: 20220701
  Transmission Date: 20221027
  Serious: Yes (Death)
  Sender: FDA-Public Use
  Company Number: None

PATIENT
  Age: 93 Year
  Sex: Male
  Weight: 67.5 kg

DRUGS (11)
  1. REVLIMID [Suspect]
     Active Substance: LENALIDOMIDE
     Indication: Plasma cell myeloma
     Dosage: OTHER FREQUENCY : 21 ON AND 7 OFF;?
     Route: 048
     Dates: start: 20130620
  2. ACYCLOVIR [Concomitant]
     Active Substance: ACYCLOVIR
  3. Caltrate 600 + D 600 mg (1,500 mg)-800 unit chewable tablet [Concomitant]
  4. DEXAMETHASONE 4MG TABLET [Concomitant]
  5. furosemide 40 mg tablet [Concomitant]
  6. HYDROCHLOROTHIAZIDE 25MG TABLET [Concomitant]
  7. METOPROLOL TARTRATE [Concomitant]
     Active Substance: METOPROLOL TARTRATE
  8. Ninlaro 2.3 mg capsule [Concomitant]
  9. potassium chloride ER 10 mEq tablet,extended release [Concomitant]
  10. PRADAXA CAP 150MG CAPSULE [Concomitant]
  11. Vitamin D3 2,000 unit capsule [Concomitant]

REACTIONS (1)
  - Death [None]
